FAERS Safety Report 24190012 (Version 4)
Quarter: 2024Q3

REPORT INFORMATION
  Report Type: Report from Study
  Country: IT (occurrence: IT)
  Receive Date: 20240808
  Receipt Date: 20240918
  Transmission Date: 20241017
  Serious: Yes (Hospitalization, Other)
  Sender: PFIZER
  Company Number: None

PATIENT
  Age: 66 Year
  Sex: Female
  Weight: 48 kg

DRUGS (8)
  1. EPIRUBICIN HYDROCHLORIDE [Suspect]
     Active Substance: EPIRUBICIN HYDROCHLORIDE
     Indication: Neoadjuvant therapy
     Dosage: 75 MG/M2, EVERY 3 WEEKS
     Route: 042
     Dates: start: 20240329, end: 20240419
  2. CYCLOPHOSPHAMIDE [Suspect]
     Active Substance: CYCLOPHOSPHAMIDE
     Indication: Neoadjuvant therapy
     Dosage: 500 MG/M2, EVERY 3 WEEKS
     Route: 042
     Dates: start: 20240329, end: 20240419
  3. KEYTRUDA [Suspect]
     Active Substance: PEMBROLIZUMAB
     Indication: Neoadjuvant therapy
     Dosage: 200 MG, EVERY 3 WEEKS
     Route: 042
     Dates: start: 20240105, end: 20240419
  4. DEXAMETHASONE [Concomitant]
     Active Substance: DEXAMETHASONE
     Indication: Therapeutic product effect increased
     Dosage: FREQ:21 D;
     Route: 042
     Dates: start: 20240329, end: 20240419
  5. PALONOSETRON FRESENIUS KABI [Concomitant]
     Indication: Prophylaxis of nausea and vomiting
     Dosage: FREQ:21 D;
     Route: 042
     Dates: start: 20240329, end: 20240419
  6. ATANTO [Concomitant]
     Indication: Prophylaxis of nausea and vomiting
     Dosage: FREQ:21 D;125 MG D180 MG D2-3
     Route: 048
     Dates: start: 20240329, end: 20240419
  7. TRIMETON [Concomitant]
     Active Substance: CHLORPHENIRAMINE MALEATE
     Indication: Chemotherapy side effect prophylaxis
     Dosage: FREQ:21 D;
     Route: 042
     Dates: start: 20240329, end: 20240419
  8. PANTOPRAZOLO SUN [Concomitant]
     Indication: Prophylaxis against gastrointestinal ulcer
     Dosage: FREQ:21 D;
     Route: 042
     Dates: start: 20240105, end: 20240419

REACTIONS (2)
  - Acute kidney injury [Recovered/Resolved]
  - Cardiac failure [Recovered/Resolved]

NARRATIVE: CASE EVENT DATE: 20240430
